FAERS Safety Report 21928857 (Version 2)
Quarter: 2023Q1

REPORT INFORMATION
  Report Type: Report from Study
  Country: IT (occurrence: IT)
  Receive Date: 20230131
  Receipt Date: 20230221
  Transmission Date: 20230418
  Serious: Yes (Hospitalization)
  Sender: FDA-Public Use
  Company Number: None

PATIENT
  Age: 71 Year
  Sex: Female

DRUGS (3)
  1. LANSOPRAZOLE [Suspect]
     Active Substance: LANSOPRAZOLE
     Indication: Product used for unknown indication
     Dosage: DOSAGE: 15 ,UNIT OF MEASURE: MILLIGRAMS ,FREQUENCY OF ADMINISTRATION: DAILY
     Route: 048
     Dates: start: 20220508, end: 20220508
  2. ENOXAPARIN SODIUM [Concomitant]
     Active Substance: ENOXAPARIN SODIUM
     Indication: Product used for unknown indication
     Dosage: DOSAGE: 2000 ,UNIT OF MEASUREMENT: INTERNATIONAL UNITS, IN THOUSANDS
     Route: 058
  3. NEOXENE [Concomitant]
     Indication: Product used for unknown indication
     Route: 067

REACTIONS (3)
  - Erythema [Recovered/Resolved]
  - Orbital oedema [Recovered/Resolved]
  - Face oedema [Recovered/Resolved]

NARRATIVE: CASE EVENT DATE: 20220508
